FAERS Safety Report 12080728 (Version 2)
Quarter: 2016Q2

REPORT INFORMATION
  Report Type: Report from Study
  Country: US (occurrence: US)
  Receive Date: 20160216
  Receipt Date: 20160513
  Transmission Date: 20160815
  Serious: Yes (Other)
  Sender: FDA-Public Use
  Company Number: US-AMGEN-USASL2016016834

PATIENT
  Age: 42 Year
  Sex: Female

DRUGS (1)
  1. ENBREL [Suspect]
     Active Substance: ETANERCEPT
     Indication: PSORIASIS
     Dosage: 50 MG, TWICE A WEEK
     Route: 065
     Dates: start: 201301

REACTIONS (6)
  - Cervix carcinoma [Unknown]
  - Erythema [Unknown]
  - Wound [Unknown]
  - Inappropriate schedule of drug administration [Unknown]
  - Neoplasm malignant [Unknown]
  - Biopsy skin [Unknown]

NARRATIVE: CASE EVENT DATE: 201301
